FAERS Safety Report 24114241 (Version 2)
Quarter: 2024Q3

REPORT INFORMATION
  Report Type: Spontaneous
  Country: US (occurrence: US)
  Receive Date: 20240720
  Receipt Date: 20240829
  Transmission Date: 20241016
  Serious: Yes (Other)
  Sender: AUROBINDO
  Company Number: US-MLMSERVICE-20240704-PI122566-00034-1

PATIENT
  Age: 59 Year
  Sex: Male

DRUGS (16)
  1. AMIODARONE HYDROCHLORIDE [Suspect]
     Active Substance: AMIODARONE HYDROCHLORIDE
     Indication: Cardiac aneurysm
     Dosage: 150 MILLIGRAM, TOTAL, RECEIVED A 150 MG AMIODARONE BOLUS
     Route: 065
  2. AMIODARONE HYDROCHLORIDE [Suspect]
     Active Substance: AMIODARONE HYDROCHLORIDE
     Indication: Myocardial fibrosis
     Dosage: 150 MILLIGRAM, TOTAL, ANOTHER 150 MG AMIODARONE BOLUS FOR PERSISTENT VT
     Route: 065
  3. AMIODARONE HYDROCHLORIDE [Suspect]
     Active Substance: AMIODARONE HYDROCHLORIDE
     Indication: Ventricular tachycardia
     Dosage: 1 MILLIGRAM, QMINUTE
     Route: 065
  4. ASPIRIN [Concomitant]
     Active Substance: ASPIRIN
     Indication: Pericarditis
     Dosage: UNK
     Route: 065
  5. ATORVASTATIN [Concomitant]
     Active Substance: ATORVASTATIN
     Indication: Product used for unknown indication
     Dosage: UNK
     Route: 065
  6. AMLODIPINE [Concomitant]
     Active Substance: AMLODIPINE BESYLATE
     Indication: Product used for unknown indication
     Dosage: UNK
     Route: 065
  7. COLCHICINE [Concomitant]
     Active Substance: COLCHICINE
     Indication: Pericarditis
     Dosage: UNK
     Route: 065
  8. DAPAGLIFLOZIN [Concomitant]
     Active Substance: DAPAGLIFLOZIN
     Indication: Product used for unknown indication
     Dosage: UNK
     Route: 065
  9. ESMOLOL [Concomitant]
     Active Substance: ESMOLOL HYDROCHLORIDE
     Indication: Ventricular tachycardia
     Dosage: 50 MICROGRAM/KILOGRAM, QMINUTE
     Route: 065
  10. ESMOLOL [Concomitant]
     Active Substance: ESMOLOL HYDROCHLORIDE
     Dosage: 100 MICROGRAM/KILOGRAM, QMINUTE, THE ESMOLOL DOSE WAS DOUBLED
     Route: 065
  11. ENALAPRIL [Concomitant]
     Active Substance: ENALAPRIL
     Indication: Product used for unknown indication
     Dosage: UNK
     Route: 065
  12. FUROSEMIDE [Concomitant]
     Active Substance: FUROSEMIDE
     Indication: Product used for unknown indication
     Dosage: UNK
     Route: 065
  13. METOPROLOL [Concomitant]
     Active Substance: METOPROLOL
     Indication: Product used for unknown indication
     Dosage: UNK
     Route: 065
  14. METFORMIN [Concomitant]
     Active Substance: METFORMIN HYDROCHLORIDE
     Indication: Product used for unknown indication
     Dosage: UNK
     Route: 065
  15. METOPROLOL SUCCINATE [Concomitant]
     Active Substance: METOPROLOL SUCCINATE
     Indication: Product used for unknown indication
     Dosage: UNK
     Route: 065
  16. TICAGRELOR [Concomitant]
     Active Substance: TICAGRELOR
     Indication: Antiplatelet therapy
     Dosage: UNK
     Route: 065

REACTIONS (2)
  - Electrocardiogram QT prolonged [Unknown]
  - Bradycardia [Unknown]
